FAERS Safety Report 17423381 (Version 1)
Quarter: 2020Q1

REPORT INFORMATION
  Report Type: Spontaneous
  Country: US (occurrence: US)
  Receive Date: 20200217
  Receipt Date: 20200217
  Transmission Date: 20200409
  Serious: Yes (Hospitalization, Other)
  Sender: FDA-Public Use
  Company Number: US-BRISTOL-MYERS SQUIBB COMPANY-BMS-2020-010738

PATIENT
  Sex: Female

DRUGS (1)
  1. MEGACE [Suspect]
     Active Substance: MEGESTROL ACETATE
     Indication: PRODUCT USED FOR UNKNOWN INDICATION
     Dosage: 5 MILLILITER
     Route: 048

REACTIONS (2)
  - Hospitalisation [Unknown]
  - Product taste abnormal [Unknown]
